FAERS Safety Report 24899406 (Version 1)
Quarter: 2025Q1

REPORT INFORMATION
  Report Type: Other
  Country: US (occurrence: US)
  Receive Date: 20250129
  Receipt Date: 20250129
  Transmission Date: 20250408
  Serious: No
  Sender: NOSTRUM
  Company Number: US-Nostrum Laboratories, Inc.-2169998

PATIENT
  Sex: Male

DRUGS (3)
  1. HYDROCODONE BITARTRATE\IBUPROFEN [Suspect]
     Active Substance: HYDROCODONE BITARTRATE\IBUPROFEN
     Indication: Pain
  2. MORPHINE SULFATE [Interacting]
     Active Substance: MORPHINE SULFATE
  3. CLOPIDOGREL [Concomitant]
     Active Substance: CLOPIDOGREL BISULFATE

REACTIONS (1)
  - Drug tolerance [Unknown]
